FAERS Safety Report 8558360-6 (Version None)
Quarter: 2012Q3

REPORT INFORMATION
  Report Type: 
  Country: None (occurrence: None)
  Receive Date: 20120801
  Receipt Date: 20120726
  Transmission Date: 20120928
  Serious: Yes (Hospitalization, Other)
  Sender: FDA-Public Use
  Company Number: ES-ELI_LILLY_AND_COMPANY-ES201202007936

PATIENT
  Sex: Female
  Weight: 59 kg

DRUGS (6)
  1. FORTEO [Suspect]
     Indication: OSTEOPOROSIS
     Dosage: 20 UG, QD
     Route: 058
     Dates: start: 20100824
  2. CREON [Concomitant]
     Dosage: 1 DF, BID
     Route: 048
  3. PRAVASTATIN [Concomitant]
     Dosage: 20 MG, QD
     Route: 048
  4. AXIAGO [Concomitant]
     Indication: HIATUS HERNIA
     Dosage: 40 MG, BID
     Route: 048
  5. LYRICA [Concomitant]
     Indication: PAIN
     Dosage: 25 MG, QD
     Route: 048
  6. ACETAMINOPHEN [Concomitant]
     Indication: PAIN
     Dosage: 1 G, QD
     Route: 048

REACTIONS (3)
  - PSEUDARTHROSIS [None]
  - DEVICE FAILURE [None]
  - DEVICE BREAKAGE [None]
